FAERS Safety Report 5907418-6 (Version None)
Quarter: 2008Q4

REPORT INFORMATION
  Report Type: 
  Country: None (occurrence: None)
  Receive Date: 20081003
  Receipt Date: 20081002
  Transmission Date: 20090506
  Serious: Yes (Death, Hospitalization)
  Sender: FDA-Public Use
  Company Number: A0749428A

PATIENT
  Sex: Male

DRUGS (2)
  1. VENTOLIN [Suspect]
     Indication: DRUG USE FOR UNKNOWN INDICATION
     Route: 065
  2. CONCURRENT MEDICATIONS [Concomitant]

REACTIONS (5)
  - CIRCULATORY COLLAPSE [None]
  - COAGULATION TIME PROLONGED [None]
  - HYPOXIA [None]
  - PNEUMONIA [None]
  - SEPSIS [None]
